FAERS Safety Report 7803352-5 (Version None)
Quarter: 2011Q4

REPORT INFORMATION
  Report Type: 
  Country: None (occurrence: None)
  Receive Date: 20111007
  Receipt Date: 20111003
  Transmission Date: 20120403
  Serious: Yes (Other)
  Sender: FDA-Public Use
  Company Number: PHEH2011US01816

PATIENT
  Sex: Female
  Weight: 95.238 kg

DRUGS (5)
  1. AFINITOR [Suspect]
     Indication: ASTROCYTOMA, LOW GRADE
     Dosage: 30 MG, EVERY SEVEN DAY
     Route: 048
     Dates: start: 20110603, end: 20110815
  2. SABRIL [Concomitant]
  3. ABILIFY [Concomitant]
  4. LEVOTHYROXINE SODIUM [Concomitant]
  5. VIMPAT [Concomitant]

REACTIONS (4)
  - QUALITY OF LIFE DECREASED [None]
  - CONVULSION [None]
  - INFECTION SUSCEPTIBILITY INCREASED [None]
  - MALAISE [None]
